FAERS Safety Report 7198552-4 (Version None)
Quarter: 2010Q4

REPORT INFORMATION
  Report Type: 
  Country: None (occurrence: None)
  Receive Date: 20101214
  Receipt Date: 20101129
  Transmission Date: 20110411
  Serious: Yes (Hospitalization)
  Sender: FDA-Public Use
  Company Number: 1000017633

PATIENT
  Age: 40 Year
  Sex: Female

DRUGS (2)
  1. CITALOPRAM (CITALOPRAM HYDROBROMIDE) (TABLETS) [Suspect]
     Dosage: 40 MG (40 MG,1 IN 1 D)
  2. FUROSEMIDE [Concomitant]

REACTIONS (7)
  - DIARRHOEA [None]
  - ELECTROCARDIOGRAM QT INTERVAL [None]
  - ELECTROLYTE IMBALANCE [None]
  - HYPOCHLORAEMIA [None]
  - HYPOKALAEMIA [None]
  - SYNCOPE [None]
  - TORSADE DE POINTES [None]
